FAERS Safety Report 7487033-6 (Version None)
Quarter: 2011Q2

REPORT INFORMATION
  Report Type: 
  Country: None (occurrence: None)
  Receive Date: 20110518
  Receipt Date: 20110509
  Transmission Date: 20111010
  Serious: Yes (Hospitalization)
  Sender: FDA-Public Use
  Company Number: US-BIOGENIDEC-2011BI017839

PATIENT
  Age: 41 Year
  Sex: Female

DRUGS (3)
  1. AVONEX [Suspect]
     Indication: MULTIPLE SCLEROSIS
     Route: 030
     Dates: start: 20080301
  2. CELLCEPT [Concomitant]
     Indication: MULTIPLE SCLEROSIS
     Dates: start: 20080101
  3. AVONEX [Suspect]
     Route: 030
     Dates: start: 20030101, end: 20060101

REACTIONS (7)
  - ANAL SPHINCTER ATONY [None]
  - POSTOPERATIVE WOUND INFECTION [None]
  - HAEMORRHAGE [None]
  - MUSCLE SPASTICITY [None]
  - URINARY INCONTINENCE [None]
  - URINARY RETENTION [None]
  - WOUND DEHISCENCE [None]
